FAERS Safety Report 20780200 (Version 4)
Quarter: 2023Q2

REPORT INFORMATION
  Report Type: Report from Study
  Country: US (occurrence: US)
  Receive Date: 20220503
  Receipt Date: 20230612
  Transmission Date: 20230722
  Serious: Yes (Hospitalization, Other)
  Sender: FDA-Public Use
  Company Number: US-ABBVIE-22K-163-4307930-00

PATIENT
  Age: 82 Year
  Sex: Female

DRUGS (3)
  1. HUMIRA [Suspect]
     Active Substance: ADALIMUMAB
     Indication: Psoriatic arthropathy
     Dosage: FORM STRENGTH: 40 MG
     Route: 058
     Dates: start: 2006
  2. HUMIRA [Suspect]
     Active Substance: ADALIMUMAB
     Dosage: FORM STRENGTH: 40 MG
     Route: 058
     Dates: start: 20211001
  3. PFIZER-BIONTECH COVID-19 VACCINE [Concomitant]
     Active Substance: TOZINAMERAN
     Indication: COVID-19 immunisation
     Dosage: ONE IN ONCE FREQUENCY
     Route: 030

REACTIONS (11)
  - Chondropathy [Unknown]
  - Femur fracture [Recovering/Resolving]
  - Fall [Recovered/Resolved]
  - Gait inability [Unknown]
  - Spinal fracture [Not Recovered/Not Resolved]
  - General physical health deterioration [Unknown]
  - Drug ineffective [Unknown]
  - Osteoporosis [Not Recovered/Not Resolved]
  - Spinal osteoarthritis [Unknown]
  - Overdose [Recovering/Resolving]
  - Weight decreased [Unknown]

NARRATIVE: CASE EVENT DATE: 20200501
